FAERS Safety Report 9436035 (Version 1)
Quarter: 2013Q3

REPORT INFORMATION
  Report Type: Spontaneous
  Country: FR (occurrence: FR)
  Receive Date: 20130801
  Receipt Date: 20130801
  Transmission Date: 20140515
  Serious: Yes (Hospitalization)
  Sender: FDA-Public Use
  Company Number: FR-LUNDBECK-DKLU1092760

PATIENT
  Age: 1 Month
  Sex: Male
  Weight: 3.33 kg

DRUGS (9)
  1. SABRIL (FOR ORAL SOLUTION) [Suspect]
     Indication: EPILEPSY
     Route: 048
     Dates: start: 20130523
  2. SABRIL (FOR ORAL SOLUTION) [Suspect]
     Route: 048
     Dates: start: 201305, end: 201306
  3. SABRIL (FOR ORAL SOLUTION) [Suspect]
     Route: 048
     Dates: start: 20130603
  4. MIDAZOLAM MYLAN [Suspect]
     Indication: SEDATION
     Route: 050
     Dates: start: 201305, end: 20130523
  5. RIVOTRIL [Suspect]
     Indication: EPILEPSY
     Route: 050
     Dates: start: 201305, end: 20130520
  6. RIVOTRIL [Suspect]
     Route: 048
     Dates: start: 20130603, end: 20130621
  7. MORPHINE HYDROCHLORIDE [Suspect]
     Indication: SEDATION
     Route: 050
     Dates: start: 20130514
  8. PHENYTOIN [Concomitant]
     Indication: PRODUCT USED FOR UNKNOWN INDICATION
     Dates: start: 201304
  9. PHENOBARBITAL [Concomitant]
     Indication: PRODUCT USED FOR UNKNOWN INDICATION
     Dates: start: 201304

REACTIONS (4)
  - Apnoea [Recovered/Resolved]
  - Bradycardia [Recovered/Resolved]
  - Hypotonia [Recovered/Resolved]
  - Somnolence [Recovered/Resolved]
